FAERS Safety Report 7609700-3 (Version None)
Quarter: 2011Q3

REPORT INFORMATION
  Report Type: 
  Country: None (occurrence: None)
  Receive Date: 20110714
  Receipt Date: 20110711
  Transmission Date: 20111222
  Serious: Yes (Other)
  Sender: FDA-Public Use
  Company Number: CA-SP-2011-04543

PATIENT
  Sex: Female

DRUGS (1)
  1. TUBERSOL [Suspect]
     Indication: TUBERCULIN TEST
     Route: 023

REACTIONS (2)
  - URTICARIA [None]
  - HYPERSENSITIVITY [None]
